FAERS Safety Report 15231900 (Version 1)
Quarter: 2018Q3

REPORT INFORMATION
  Report Type: Spontaneous
  Country: CA (occurrence: CA)
  Receive Date: 20180802
  Receipt Date: 20180802
  Transmission Date: 20181010
  Serious: Yes (Hospitalization, Other)
  Sender: FDA-Public Use
  Company Number: CA-B.I. PHARMACEUTICALS,INC./RIDGEFIELD-2018-BI-038295

PATIENT
  Age: 62 Year
  Sex: Female

DRUGS (3)
  1. TRANDOLAPRIL. [Concomitant]
     Active Substance: TRANDOLAPRIL
     Indication: HYPERTENSION
     Route: 065
  2. HYDROCHLOROTHIAZIDE. [Concomitant]
     Active Substance: HYDROCHLOROTHIAZIDE
     Indication: HYPERTENSION
     Route: 065
  3. PRADAXA [Suspect]
     Active Substance: DABIGATRAN ETEXILATE MESYLATE
     Indication: PULMONARY EMBOLISM
     Route: 065

REACTIONS (10)
  - Head injury [Unknown]
  - Urinary tract infection [Unknown]
  - Hyponatraemia [Unknown]
  - Fall [Unknown]
  - Intraventricular haemorrhage [Recovered/Resolved]
  - Cerebral infarction [Unknown]
  - Subarachnoid haemorrhage [Recovered/Resolved]
  - Cerebral vasoconstriction [Recovered/Resolved]
  - Delirium [Recovered/Resolved]
  - Hypovolaemia [Unknown]
